FAERS Safety Report 5509376-5 (Version None)
Quarter: 2007Q4

REPORT INFORMATION
  Report Type: 
  Country: None (occurrence: None)
  Receive Date: 20071107
  Receipt Date: 20071105
  Transmission Date: 20080405
  Serious: Yes (Hospitalization)
  Sender: FDA-Public Use
  Company Number: FR-MERCK-0711FRA00013

PATIENT
  Age: 84 Year
  Sex: Female

DRUGS (10)
  1. COZAAR [Suspect]
     Indication: HYPERTENSION
     Route: 048
  2. GLICLAZIDE [Suspect]
     Route: 048
  3. FUROSEMIDE [Suspect]
     Indication: HYPERTENSION
     Route: 048
  4. DIGOXIN [Suspect]
     Indication: ARRHYTHMIA
     Route: 048
  5. AMIODARONE HYDROCHLORIDE [Suspect]
     Indication: ARRHYTHMIA
     Route: 048
  6. ACENOCOUMAROL [Suspect]
     Indication: ARRHYTHMIA
     Route: 048
  7. TRAMADOL HYDROCHLORIDE [Suspect]
     Indication: ARTERITIS
     Route: 048
     Dates: start: 20070922, end: 20070924
  8. ACETAMINOPHEN AND PROPOXYPHENE HYDROCHLORIDE [Suspect]
     Indication: ARTERITIS
     Route: 048
     Dates: start: 20070924
  9. NICARDIPINE HYDROCHLORIDE [Suspect]
     Indication: HYPERTENSION
     Route: 042
     Dates: start: 20070928
  10. FLUOXETINE HYDROCHLORIDE [Suspect]
     Route: 048

REACTIONS (2)
  - ARTERITIS [None]
  - HYPONATRAEMIA [None]
